FAERS Safety Report 26000923 (Version 3)
Quarter: 2025Q4

REPORT INFORMATION
  Report Type: Spontaneous
  Country: JP (occurrence: JP)
  Receive Date: 20251105
  Receipt Date: 20251224
  Transmission Date: 20260117
  Serious: Yes (Life-Threatening)
  Sender: ALEXION PHARMACEUTICALS
  Company Number: JP-ASTRAZENECA-202510JPN031624JP

PATIENT
  Age: 63 Year
  Sex: Female
  Weight: 48.3 kg

DRUGS (3)
  1. IMFINZI [Suspect]
     Active Substance: DURVALUMAB
     Indication: Endometrial cancer
     Dosage: 1120 MILLIGRAM, Q3W
     Dates: start: 20250523
  2. PACLITAXEL [Concomitant]
     Active Substance: PACLITAXEL
     Dosage: 180 MILLIGRAM/SQ. METER
     Route: 065
  3. CARBOPLATIN [Concomitant]
     Active Substance: CARBOPLATIN
     Dosage: AUC5
     Route: 065

REACTIONS (3)
  - Neutrophil count decreased [Recovering/Resolving]
  - Anaemia [Unknown]
  - Peripheral sensory neuropathy [Not Recovered/Not Resolved]

NARRATIVE: CASE EVENT DATE: 20250101
